FAERS Safety Report 17228952 (Version 1)
Quarter: 2020Q1

REPORT INFORMATION
  Report Type: Spontaneous
  Country: US (occurrence: US)
  Receive Date: 20200103
  Receipt Date: 20200103
  Transmission Date: 20200409
  Serious: Yes (Other)
  Sender: FDA-Public Use
  Company Number: US-CELGENEUS-USA-20191210414

PATIENT
  Age: 46 Year
  Sex: Female

DRUGS (2)
  1. OTEZLA [Suspect]
     Active Substance: APREMILAST
     Indication: GASTROOESOPHAGEAL REFLUX DISEASE
     Dosage: 60 MILLIGRAM
     Route: 048
     Dates: start: 20180401
  2. OTEZLA [Suspect]
     Active Substance: APREMILAST
     Indication: OFF LABEL USE
     Route: 048
     Dates: start: 201909

REACTIONS (1)
  - Gallbladder disorder [Recovered/Resolved]

NARRATIVE: CASE EVENT DATE: 20180408
